FAERS Safety Report 12071502 (Version 1)
Quarter: 2016Q1

REPORT INFORMATION
  Report Type: Spontaneous
  Country: CA (occurrence: CA)
  Receive Date: 20160211
  Receipt Date: 20160211
  Transmission Date: 20160526
  Serious: Yes (Other)
  Sender: FDA-Public Use
  Company Number: CA-ROCHE-1709183

PATIENT
  Age: 50 Year
  Sex: Female

DRUGS (5)
  1. ALVESCO [Concomitant]
     Active Substance: CICLESONIDE
  2. ZENHALE [Concomitant]
     Active Substance: FORMOTEROL FUMARATE\MOMETASONE FUROATE
     Dosage: 100/5 UG
     Route: 065
  3. ATROVENT HFA [Concomitant]
     Active Substance: IPRATROPIUM BROMIDE
  4. VENTOLIN [Concomitant]
     Active Substance: ALBUTEROL SULFATE
  5. XOLAIR [Suspect]
     Active Substance: OMALIZUMAB
     Indication: ASTHMA
     Route: 058
     Dates: start: 20140214

REACTIONS (4)
  - Bronchitis [Unknown]
  - Headache [Unknown]
  - Allergy to animal [Unknown]
  - Asthma [Recovering/Resolving]

NARRATIVE: CASE EVENT DATE: 20140215
